FAERS Safety Report 17755895 (Version 7)
Quarter: 2020Q4

REPORT INFORMATION
  Report Type: Spontaneous
  Country: US (occurrence: US)
  Receive Date: 20200507
  Receipt Date: 20201223
  Transmission Date: 20210113
  Serious: Yes (Hospitalization)
  Sender: FDA-Public Use
  Company Number: US-PFIZER INC-2019420273

PATIENT
  Age: 59 Year
  Sex: Male

DRUGS (1)
  1. LYRICA [Suspect]
     Active Substance: PREGABALIN
     Dosage: 150 MG, 4X/DAY
     Route: 048

REACTIONS (8)
  - Somnolence [Unknown]
  - Slow speech [Unknown]
  - Product prescribing error [Unknown]
  - COVID-19 [Unknown]
  - Illness [Unknown]
  - Pain [Unknown]
  - Moaning [Unknown]
  - Speech disorder [Unknown]
